FAERS Safety Report 5777088-9 (Version None)
Quarter: 2008Q2

REPORT INFORMATION
  Report Type: 
  Country: None (occurrence: None)
  Receive Date: 20080617
  Receipt Date: 20080617
  Transmission Date: 20081010
  Serious: No
  Sender: FDA-Public Use
  Company Number: None

PATIENT
  Age: 60 Year
  Sex: Male

DRUGS (11)
  1. WARFARIN SODIUM [Suspect]
     Indication: PROPHYLAXIS
     Dosage: 5 MG PO QD
     Route: 048
     Dates: start: 20080418, end: 20080420
  2. ASPIRIN [Concomitant]
  3. ATORVASTATIN [Concomitant]
  4. HYDRALAZINE HCL [Concomitant]
  5. INSULIN ASPART [Concomitant]
  6. ISDN [Concomitant]
  7. MEROPENEM [Concomitant]
  8. METOPROLOL [Concomitant]
  9. METRONIDAZOLE HCL [Concomitant]
  10. PHENYTOIN [Concomitant]
  11. RANITIDINE HCL [Concomitant]

REACTIONS (3)
  - CARDIAC ARREST [None]
  - HYPOXIA [None]
  - INTERNATIONAL NORMALISED RATIO INCREASED [None]
